FAERS Safety Report 15744474 (Version 1)
Quarter: 2018Q4

REPORT INFORMATION
  Report Type: Report from Study
  Country: CA (occurrence: CA)
  Receive Date: 20181220
  Receipt Date: 20181220
  Transmission Date: 20190205
  Serious: Yes (Other)
  Sender: FDA-Public Use
  Company Number: CA-TEVA-2018-CA-990316

PATIENT
  Age: 45 Year
  Sex: Female

DRUGS (1)
  1. COPAXONE [Suspect]
     Active Substance: GLATIRAMER ACETATE
     Indication: MULTIPLE SCLEROSIS
     Route: 058
     Dates: start: 20180103

REACTIONS (10)
  - Dizziness [Unknown]
  - Nasal discomfort [Unknown]
  - Obstructive airways disorder [Unknown]
  - Feeling hot [Unknown]
  - Heart rate increased [Unknown]
  - Dyspnoea [Unknown]
  - Immediate post-injection reaction [Unknown]
  - Lip swelling [Unknown]
  - Hypersensitivity [Unknown]
  - Flushing [Unknown]

NARRATIVE: CASE EVENT DATE: 20181130
